FAERS Safety Report 4989135-2 (Version None)
Quarter: 2006Q2

REPORT INFORMATION
  Report Type: 
  Country: None (occurrence: None)
  Receive Date: 20060502
  Receipt Date: 20060327
  Transmission Date: 20061013
  Serious: Yes (Hospitalization, Other)
  Sender: FDA-Public Use
  Company Number: US-AMGEN-STX173928

PATIENT
  Sex: Male
  Weight: 40.9 kg

DRUGS (5)
  1. ENBREL [Suspect]
     Indication: JUVENILE ARTHRITIS
     Dates: start: 20051001, end: 20060317
  2. ENBREL [Suspect]
     Indication: SERONEGATIVE ARTHRITIS
  3. NAPROSYN [Concomitant]
     Route: 048
     Dates: start: 20050901
  4. MULTIVITAMIN [Concomitant]
  5. MEDROL [Concomitant]
     Dates: start: 20051117

REACTIONS (8)
  - ARTHRALGIA [None]
  - BACK PAIN [None]
  - CONDITION AGGRAVATED [None]
  - DEPRESSED MOOD [None]
  - JOINT SWELLING [None]
  - LEUKAEMIA [None]
  - PYREXIA [None]
  - TENOSYNOVITIS [None]
